FAERS Safety Report 6609799-7 (Version None)
Quarter: 2010Q1

REPORT INFORMATION
  Report Type: 
  Country: None (occurrence: None)
  Receive Date: 20100302
  Receipt Date: 20100222
  Transmission Date: 20100710
  Serious: Yes (Hospitalization)
  Sender: FDA-Public Use
  Company Number: IN-ELI_LILLY_AND_COMPANY-IN200912005850

PATIENT
  Sex: Male
  Weight: 73 kg

DRUGS (5)
  1. BYETTA [Suspect]
     Indication: TYPE 2 DIABETES MELLITUS
     Dosage: 10 UG, DAILY (1/D)
     Route: 058
     Dates: start: 20090801, end: 20091212
  2. NIFEDIPINE [Concomitant]
     Indication: HYPERTENSION
     Dosage: 20 MG, 2/D
     Route: 048
  3. METOPROLOL TARTRATE [Concomitant]
     Indication: HYPERTENSION
     Dosage: 50 MG, DAILY (1/D)
     Route: 048
  4. GLIMEPIRIDE [Concomitant]
     Indication: DIABETES MELLITUS
     Dosage: 2 MG, 2/D
     Route: 048
  5. METFORMIN HCL [Concomitant]
     Indication: DIABETES MELLITUS
     Dosage: 500 MG, 2/D
     Route: 048

REACTIONS (3)
  - CHOLELITHIASIS [None]
  - PANCREATITIS [None]
  - WEIGHT DECREASED [None]
